FAERS Safety Report 5977123-9 (Version None)
Quarter: 2008Q4

REPORT INFORMATION
  Report Type: 
  Country: None (occurrence: None)
  Receive Date: 20081203
  Receipt Date: 20081121
  Transmission Date: 20090506
  Serious: Yes (Other)
  Sender: FDA-Public Use
  Company Number: US-ROCHE-478513

PATIENT
  Sex: Female

DRUGS (6)
  1. BONIVA [Suspect]
     Indication: OSTEOPOROSIS
     Dosage: FORM: PILL.
     Route: 065
     Dates: start: 20070223, end: 20080422
  2. LEVOTHYROXINE SODIUM [Concomitant]
     Indication: HYPOTHYROIDISM
     Dates: start: 20061009
  3. LIPITOR [Concomitant]
     Dates: start: 20070319
  4. METFORMIN HCL [Concomitant]
     Dates: start: 20070110
  5. NIACIN [Concomitant]
     Dates: start: 20070223
  6. NIASPAN [Concomitant]
     Dates: start: 20070319

REACTIONS (2)
  - IRIDOCYCLITIS [None]
  - RENAL MASS [None]
